FAERS Safety Report 5381647-5 (Version None)
Quarter: 2007Q2

REPORT INFORMATION
  Report Type: 
  Country: None (occurrence: None)
  Receive Date: 20070629
  Receipt Date: 20070502
  Transmission Date: 20071010
  Serious: Yes (Other)
  Sender: FDA-Public Use
  Company Number: A03200702868

PATIENT
  Age: 53 Year
  Sex: Female

DRUGS (2)
  1. AMBIEN [Suspect]
     Indication: INSOMNIA
     Dosage: ORAL
     Route: 048
     Dates: start: 20060101, end: 20060101
  2. TIAGABINE HYDROCHLORIDE [Concomitant]

REACTIONS (4)
  - DISORIENTATION [None]
  - FALL [None]
  - HEAD INJURY [None]
  - TREMOR [None]
